FAERS Safety Report 20099956 (Version 2)
Quarter: 2021Q4

REPORT INFORMATION
  Report Type: Report from Study
  Country: GB (occurrence: GB)
  Receive Date: 20211123
  Receipt Date: 20211220
  Transmission Date: 20220303
  Serious: Yes (Other)
  Sender: FDA-Public Use
  Company Number: GB-IPSEN Group, Research and Development-2021-01275

PATIENT
  Age: 73 Year
  Sex: Male

DRUGS (1)
  1. LANREOTIDE ACETATE [Suspect]
     Active Substance: LANREOTIDE ACETATE
     Indication: Neuroendocrine tumour
     Dosage: 120 MG/0.5ML
     Route: 058

REACTIONS (25)
  - General physical health deterioration [Unknown]
  - Bone disorder [Unknown]
  - Petit mal epilepsy [Unknown]
  - Malaise [Unknown]
  - Fall [Unknown]
  - Hydrocephalus [Unknown]
  - Cellulitis [Unknown]
  - Diarrhoea [Unknown]
  - Groin pain [Unknown]
  - Pain [Unknown]
  - Pain in extremity [Unknown]
  - Decreased appetite [Unknown]
  - Weight decreased [Unknown]
  - Thyroid disorder [Unknown]
  - Malaise [Unknown]
  - Fatigue [Unknown]
  - Urinary tract infection [Unknown]
  - Memory impairment [Unknown]
  - Eczema [Unknown]
  - Confusional state [Unknown]
  - Hypovolaemia [Unknown]
  - Insomnia [Unknown]
  - Anxiety [Unknown]
  - Somnolence [Unknown]
  - Asthenia [Unknown]

NARRATIVE: CASE EVENT DATE: 20210101
